FAERS Safety Report 4282874-0 (Version None)
Quarter: 2004Q1

REPORT INFORMATION
  Report Type: 
  Country: None (occurrence: None)
  Receive Date: 20040130
  Receipt Date: 20030812
  Transmission Date: 20041129
  Serious: No
  Sender: FDA-Public Use
  Company Number: US-BRISTOL-MYERS SQUIBB COMPANY-12352985

PATIENT
  Age: 61 Year
  Sex: Male
  Weight: 77 kg

DRUGS (4)
  1. SERZONE [Suspect]
     Indication: DEPRESSION
     Dosage: THERAPY ^FOR YEARS^;INITIAL DOSE 200 MG AM AND 400 MG PM;4-JUN-03 TAPERED TO 200 MG AT NIGHT
     Route: 048
  2. PRAVACHOL [Concomitant]
  3. ASPIRIN [Concomitant]
  4. FOLIC ACID [Concomitant]

REACTIONS (2)
  - DRUG DEPENDENCE [None]
  - NAUSEA [None]
